FAERS Safety Report 8318691-1 (Version None)
Quarter: 2012Q1

REPORT INFORMATION
  Report Type: 
  Country: None (occurrence: None)
  Receive Date: 20120315
  Receipt Date: 20110526
  Transmission Date: 20120608
  Serious: Yes (Other)
  Sender: FDA-Public Use
  Company Number: PHHY2011US18828

PATIENT
  Age: 54 Year
  Sex: Female
  Weight: 48.1 kg

DRUGS (9)
  1. CLONAZEPAM [Concomitant]
  2. LEMOXIL [Concomitant]
  3. TRAZODONE HCL [Concomitant]
  4. LEVOTHYROXINE SODIUM [Concomitant]
  5. GILENYA [Suspect]
     Indication: MULTIPLE SCLEROSIS
     Dosage: 0.5 MG, QD, ORAL
     Route: 048
     Dates: start: 20110304
  6. TRAMADOL HCL [Concomitant]
  7. BUPROPION HYDROCHLORIDE [Concomitant]
  8. CYMBALTA [Concomitant]
  9. VICODIN [Concomitant]

REACTIONS (8)
  - DRUG INEFFECTIVE [None]
  - MULTIPLE SCLEROSIS [None]
  - HEADACHE [None]
  - HYPOAESTHESIA [None]
  - VOMITING [None]
  - ABDOMINAL DISCOMFORT [None]
  - ASTHENIA [None]
  - DIARRHOEA [None]
